FAERS Safety Report 5052177-5 (Version None)
Quarter: 2006Q3

REPORT INFORMATION
  Report Type: 
  Country: None (occurrence: None)
  Receive Date: 20060712
  Receipt Date: 20060712
  Transmission Date: 20061208
  Serious: Yes (Hospitalization)
  Sender: FDA-Public Use
  Company Number: None

PATIENT
  Age: 86 Year
  Sex: Male
  Weight: 74.8 kg

DRUGS (1)
  1. VANCOMYCIN [Suspect]
     Indication: POSTOPERATIVE CARE
     Dosage: 1000MG, ONCE, INTRAVEN
     Route: 042
     Dates: start: 20060408, end: 20060408

REACTIONS (1)
  - RASH [None]
